FAERS Safety Report 11225447 (Version 1)
Quarter: 2015Q2

REPORT INFORMATION
  Report Type: Spontaneous
  Country: US (occurrence: None)
  Receive Date: 20150626
  Receipt Date: 20150626
  Transmission Date: 20150821
  Serious: Yes (Other)
  Sender: FDA-Public Use
  Company Number: None

PATIENT
  Sex: Female
  Weight: 166 kg

DRUGS (4)
  1. TRAMADOL 10 MG [Suspect]
     Active Substance: TRAMADOL
     Indication: ARTHRITIS
     Dosage: TAKEN BY MOUTH
     Route: 048
     Dates: start: 20150501, end: 20150625
  2. AMLODIPINE [Concomitant]
     Active Substance: AMLODIPINE BESYLATE
  3. FLUOXETINE [Concomitant]
     Active Substance: FLUOXETINE\FLUOXETINE HYDROCHLORIDE
  4. CHLORAZEPAM [Concomitant]

REACTIONS (7)
  - Paraesthesia [None]
  - Blister [None]
  - Neck pain [None]
  - Back pain [None]
  - Musculoskeletal pain [None]
  - Vision blurred [None]
  - Muscular weakness [None]

NARRATIVE: CASE EVENT DATE: 20150601
